FAERS Safety Report 8593837-9 (Version None)
Quarter: 2012Q3

REPORT INFORMATION
  Report Type: 
  Country: None (occurrence: None)
  Receive Date: 20120803
  Receipt Date: 20120803
  Transmission Date: 20120928
  Serious: Yes (Other)
  Sender: FDA-Public Use
  Company Number: None

PATIENT
  Sex: Male
  Weight: 57.1532 kg

DRUGS (3)
  1. WARFARIN SODIUM [Concomitant]
  2. DILTIAZEM HCL [Suspect]
     Indication: TACHYCARDIA
     Dosage: 240 MG ONCE DAILY PO
     Route: 048
     Dates: start: 20120515, end: 20120724
  3. LOVASTATIN [Concomitant]

REACTIONS (2)
  - TACHYCARDIA [None]
  - PRODUCT SUBSTITUTION ISSUE [None]
